FAERS Safety Report 4802499-5 (Version None)
Quarter: 2005Q4

REPORT INFORMATION
  Report Type: 
  Country: None (occurrence: None)
  Receive Date: 20051018
  Receipt Date: 20051013
  Transmission Date: 20060501
  Serious: Yes (Death)
  Sender: FDA-Public Use
  Company Number: US-MERCK-0510USA07026

PATIENT
  Age: 42 Year
  Sex: Male

DRUGS (4)
  1. VIOXX [Suspect]
     Indication: SHOULDER PAIN
     Route: 048
  2. VIOXX [Suspect]
     Indication: ARTHRALGIA
     Route: 048
  3. CELEBREX [Suspect]
     Indication: SHOULDER PAIN
     Route: 065
  4. CELEBREX [Suspect]
     Indication: ARTHRALGIA
     Route: 065

REACTIONS (1)
  - MYOCARDIAL INFARCTION [None]
